FAERS Safety Report 6070051-2 (Version None)
Quarter: 2009Q1

REPORT INFORMATION
  Report Type: 
  Country: None (occurrence: None)
  Receive Date: 20090209
  Receipt Date: 20090201
  Transmission Date: 20090719
  Serious: Yes (Other)
  Sender: FDA-Public Use
  Company Number: PHHY2009BR03635

PATIENT
  Age: 24 Year
  Sex: Female

DRUGS (6)
  1. VOLTAREN [Suspect]
     Dosage: 1 BLISTER
     Route: 048
     Dates: start: 20090201
  2. LEVONORGESTREL [Concomitant]
     Dosage: 2 BLISTERS
     Route: 048
     Dates: start: 20090201
  3. ATENOLOL [Concomitant]
     Dosage: 5 TABLETS
     Route: 048
     Dates: start: 20090201
  4. ACETYLSALICYLIC ACID SRT [Concomitant]
     Dosage: 4 TABLETS
     Route: 048
     Dates: start: 20090201
  5. PARACETAMOL [Concomitant]
     Dosage: 750 MG,3 TABLETS
     Route: 048
     Dates: start: 20090201
  6. NORETHISTERON [Concomitant]
     Dosage: 5 TABLETS
     Route: 048
     Dates: start: 20090201

REACTIONS (2)
  - SUICIDE ATTEMPT [None]
  - VOMITING [None]
